FAERS Safety Report 6257221-5 (Version None)
Quarter: 2009Q3

REPORT INFORMATION
  Report Type: 
  Country: None (occurrence: None)
  Receive Date: 20090706
  Receipt Date: 20090624
  Transmission Date: 20100115
  Serious: Yes (Hospitalization)
  Sender: FDA-Public Use
  Company Number: FR-WYE-H09946509

PATIENT
  Sex: Male

DRUGS (7)
  1. EUPANTOL [Suspect]
     Route: 048
     Dates: start: 20081004, end: 20081010
  2. XANAX [Suspect]
     Dosage: 0.25 MG/1 DOSAGE FORMS, FREQUENCY UNSPECIFIED
     Route: 048
     Dates: start: 20081005
  3. DI-ANTALVIC [Suspect]
     Dosage: 6 DOSAGE FORMS
     Route: 048
     Dates: start: 20081003, end: 20081005
  4. PROPACETAMOL [Suspect]
     Dosage: 4 GM, FREQUENCY UNSPECIFIED
     Route: 042
     Dates: start: 20081001, end: 20081013
  5. TOPALGIC [Suspect]
     Dosage: 150 MG, FREQUENCY UNSPECIFIED
     Route: 048
     Dates: start: 20081003, end: 20081005
  6. CALCIPARINE [Suspect]
     Dosage: 7500 IU (1 DOSAGE FORMS, FREQUENCY UNSPECIFIED)
     Route: 058
  7. ROCEPHIN [Suspect]
     Dosage: 1GM, FREQUENCY UNSPECIFIED
     Route: 042
     Dates: start: 20081005, end: 20081017

REACTIONS (2)
  - RENAL FAILURE ACUTE [None]
  - RENAL TUBULAR DISORDER [None]
